FAERS Safety Report 9880192 (Version 1)
Quarter: 2014Q1

REPORT INFORMATION
  Report Type: Spontaneous
  Country: US (occurrence: US)
  Receive Date: 20140207
  Receipt Date: 20140207
  Transmission Date: 20141002
  Serious: No
  Sender: FDA-Public Use
  Company Number: US-BIOGENIDEC-2014BI009256

PATIENT
  Age: 37 Year
  Sex: Female

DRUGS (2)
  1. TECFIDERA [Suspect]
     Indication: MULTIPLE SCLEROSIS
     Route: 048
     Dates: start: 20140109
  2. ASPIRIN [Concomitant]
     Indication: PREMEDICATION

REACTIONS (3)
  - Endodontic procedure [Recovered/Resolved]
  - Photosensitivity reaction [Unknown]
  - Hot flush [Not Recovered/Not Resolved]
